FAERS Safety Report 8534933 (Version 4)
Quarter: 2012Q4

REPORT INFORMATION
  Report Type: 
  Country: US (occurrence: US)
  Receive Date: 20120427
  Receipt Date: 20121023
  Transmission Date: 20130627
  Serious: Yes (Hospitalization)
  Sender: FDA-Public Use
  Company Number: US-DX529-2012DX000098

PATIENT
  Age: 46 Year
  Sex: Female
  Weight: 110.22 kg

DRUGS (11)
  1. KALBITOR [Suspect]
     Indication: ABDOMINAL DISTENSION
     Route: 058
     Dates: start: 20120304, end: 20120304
  2. KALBITOR [Suspect]
     Indication: ABDOMINAL PAIN
     Route: 058
     Dates: start: 20120304, end: 20120304
  3. KALBITOR [Suspect]
     Indication: HEREDITARY ANGIOEDEMA
     Route: 058
     Dates: start: 20120304, end: 20120304
  4. KALBITOR [Suspect]
     Indication: ABDOMINAL DISTENSION
     Route: 058
     Dates: start: 20120404, end: 20120404
  5. KALBITOR [Suspect]
     Indication: ABDOMINAL PAIN
     Route: 058
     Dates: start: 20120404, end: 20120404
  6. KALBITOR [Suspect]
     Indication: HEREDITARY ANGIOEDEMA
     Route: 058
     Dates: start: 20120404, end: 20120404
  7. KALBITOR [Suspect]
     Indication: ABDOMINAL DISTENSION
     Route: 058
     Dates: start: 20120404, end: 20120404
  8. KALBITOR [Suspect]
     Indication: ABDOMINAL PAIN
     Route: 058
     Dates: start: 20120404, end: 20120404
  9. KALBITOR [Suspect]
     Indication: HEREDITARY ANGIOEDEMA
     Route: 058
     Dates: start: 20120404, end: 20120404
  10. MORPHINE [Concomitant]
     Indication: BACK PAIN
  11. ALL OTHER THERAPEUTIC PRODUCTS [Concomitant]
     Indication: PRODUCT USED FOR UNKNOWN INDICATION

REACTIONS (12)
  - Pancreatitis [Recovered/Resolved]
  - Drug ineffective for unapproved indication [Unknown]
  - Dizziness [None]
  - Hyperhidrosis [None]
  - Visual impairment [None]
  - Diplopia [None]
  - Deafness [None]
  - Vision blurred [None]
  - Nail infection [None]
  - Pallor [None]
  - Asthenia [None]
  - Therapeutic response decreased [None]
